FAERS Safety Report 4876926-1 (Version None)
Quarter: 2005Q4

REPORT INFORMATION
  Report Type: 
  Country: None (occurrence: None)
  Receive Date: 20051206
  Receipt Date: 20050805
  Transmission Date: 20060501
  Serious: No
  Sender: FDA-Public Use
  Company Number: USA0507104000

PATIENT
  Age: 57 Year
  Sex: Female

DRUGS (4)
  1. CYMBALTA [Suspect]
     Indication: MAJOR DEPRESSION
     Dosage: 60 MG DAY
     Dates: start: 20041018, end: 20050717
  2. WELLBUTRIN [Concomitant]
  3. ADDERALL 10 [Concomitant]
  4. XANAX [Concomitant]

REACTIONS (1)
  - DRUG WITHDRAWAL SYNDROME [None]
